FAERS Safety Report 24913441 (Version 1)
Quarter: 2025Q1

REPORT INFORMATION
  Report Type: Spontaneous
  Country: JP (occurrence: JP)
  Receive Date: 20250201
  Receipt Date: 20250201
  Transmission Date: 20250409
  Serious: Yes (Other)
  Sender: MERCK
  Company Number: JP-MSD-M2025-03272

PATIENT
  Sex: Female
  Weight: 45 kg

DRUGS (1)
  1. LAGEVRIO [Suspect]
     Active Substance: MOLNUPIRAVIR
     Indication: COVID-19 treatment
     Dosage: 800 MILLIGRAM, BID
     Route: 048
     Dates: start: 20250127

REACTIONS (8)
  - Pharyngeal haemorrhage [Unknown]
  - Ageusia [Unknown]
  - Eye pain [Unknown]
  - Chest pain [Unknown]
  - Rhinorrhoea [Unknown]
  - Dysuria [Unknown]
  - Hypoaesthesia oral [Unknown]
  - Product use complaint [Unknown]

NARRATIVE: CASE EVENT DATE: 20250128
